FAERS Safety Report 6657481-2 (Version None)
Quarter: 2010Q1

REPORT INFORMATION
  Report Type: 
  Country: None (occurrence: None)
  Receive Date: 20100330
  Receipt Date: 20100322
  Transmission Date: 20100710
  Serious: Yes (Other)
  Sender: FDA-Public Use
  Company Number: PHEH2005US10680

PATIENT

DRUGS (42)
  1. ZOMETA [Suspect]
     Indication: METASTASES TO BONE
     Dosage: 4 MG EVERY MONTH
     Dates: start: 20021125, end: 20040225
  2. TAXOTERE [Concomitant]
     Dosage: 80 MG, QW
     Route: 042
     Dates: start: 20020109, end: 20030101
  3. LUPRON [Concomitant]
     Indication: PROSTATE CANCER
     Dosage: 4 MG, QW
     Route: 030
     Dates: start: 20030326
  4. CASODEX [Concomitant]
     Indication: PROSTATE CANCER
     Dosage: 50 MG, QD ONGOING AS OF OCTOBER 2003
     Route: 048
     Dates: start: 20021001
  5. HORMONES [Concomitant]
  6. VICODIN [Concomitant]
     Indication: PAIN
     Dosage: UNK, PRN
  7. OXYCONTIN [Concomitant]
  8. MS CONTIN [Concomitant]
     Indication: BACK PAIN
     Dosage: ONGOING AS OF 2003 (NO DATE SPECIFIED)
     Dates: start: 20021001
  9. DURAGESIC-100 [Concomitant]
     Indication: BACK PAIN
     Dosage: PRN
     Route: 062
     Dates: start: 20021001, end: 20030101
  10. EFFEXOR [Concomitant]
     Indication: DEPRESSION
     Dosage: 37.5 MG, BID ONGOING AS OF 2003 (NOT SPEC.)
     Route: 048
     Dates: start: 20021001
  11. AMBIEN [Concomitant]
     Indication: SLEEP DISORDER
     Dosage: ONGOING AS OF 2003 (NO DATE SPECIFIED)
     Dates: start: 20021001, end: 20030201
  12. CARDURA /JOR/ [Concomitant]
     Dosage: 4 MG, BID ONGOING AS OF OCTOBER 2003
     Route: 048
     Dates: start: 20021001
  13. SENOKOT /USA/ [Concomitant]
     Dosage: ONGOINGAS OF 2003 (NO DATE SPECIFIED)
     Dates: start: 20021001
  14. MELATONIN [Concomitant]
     Dosage: ONGOING AS OF 2003 (NO DATE SPECIFIED)
     Dates: start: 20021001
  15. ANZEMET [Concomitant]
     Dosage: 100 MG, QMO
     Route: 042
     Dates: start: 20020116
  16. INFLUENZA VACCINE [Concomitant]
  17. ROCALTROL [Concomitant]
     Indication: OSTEOPOROSIS
     Dosage: UNK, QD
     Route: 048
     Dates: start: 20030226
  18. PROSCAR [Concomitant]
     Dates: start: 20030716
  19. CALCITRIOL [Concomitant]
  20. DECADRON /NET/ [Concomitant]
     Dosage: 8 MG, QMO
     Route: 042
     Dates: start: 20020116
  21. NEXIUM [Concomitant]
  22. RADIATION THERAPY [Concomitant]
  23. SODIUM FLUORIDE [Concomitant]
  24. ARTHROTEC [Concomitant]
  25. ZITHROMAX [Concomitant]
  26. MUCINEX [Concomitant]
  27. PROCHLORPERAZINE [Concomitant]
  28. IPRATROPIUM BROMIDE [Concomitant]
  29. LORAZEPAM [Concomitant]
  30. GLYCOLAX [Concomitant]
  31. AMOXICILLIN [Concomitant]
  32. HYDROCODONE BITARTRATE AND ACETAMINOPHEN [Concomitant]
  33. MORPHINE SULFATE [Concomitant]
  34. DIAZEPAM [Concomitant]
  35. ZOLPIDEM [Concomitant]
  36. TEMAZEPAM [Concomitant]
  37. SUCRALFATE [Concomitant]
  38. FLUCONAZOLE [Concomitant]
  39. CYMBALTA [Concomitant]
  40. TAMOXIFEN CITRATE [Concomitant]
  41. TRIPTORELIN [Concomitant]
  42. HUMIBID [Concomitant]

REACTIONS (62)
  - ANDROGENS ABNORMAL [None]
  - ANXIETY [None]
  - ARTHRALGIA [None]
  - ASTHENIA [None]
  - BACK PAIN [None]
  - BONE DEBRIDEMENT [None]
  - BONE DENSITY DECREASED [None]
  - BONE DISORDER [None]
  - BONE PAIN [None]
  - CANDIDIASIS [None]
  - CHILLS [None]
  - CHOKING [None]
  - CHRONIC OBSTRUCTIVE PULMONARY DISEASE [None]
  - CONSTIPATION [None]
  - COUGH [None]
  - DENTAL CARIES [None]
  - DENTAL OPERATION [None]
  - DENTURE WEARER [None]
  - DEPRESSION [None]
  - DIVERTICULUM [None]
  - DYSGEUSIA [None]
  - DYSPHONIA [None]
  - DYSPNOEA [None]
  - DYSPNOEA EXERTIONAL [None]
  - ENDODONTIC PROCEDURE [None]
  - FATIGUE [None]
  - GINGIVAL PAIN [None]
  - GINGIVAL SWELLING [None]
  - HAEMOPTYSIS [None]
  - HOT FLUSH [None]
  - HYPERAEMIA [None]
  - IMPAIRED HEALING [None]
  - INTERVERTEBRAL DISC DISORDER [None]
  - JAW DISORDER [None]
  - LARYNGOSPASM [None]
  - LOOSE TOOTH [None]
  - LUNG NEOPLASM [None]
  - LYMPHADENOPATHY [None]
  - LYMPHOPROLIFERATIVE DISORDER [None]
  - MOUTH ULCERATION [None]
  - NASAL CONGESTION [None]
  - NASAL ULCER [None]
  - ORAL DISCOMFORT [None]
  - OROPHARYNGEAL PAIN [None]
  - OSTEONECROSIS [None]
  - PAIN [None]
  - PLEURITIC PAIN [None]
  - PNEUMONIA [None]
  - POSTNASAL DRIP [None]
  - PYREXIA [None]
  - RECTAL FISSURE [None]
  - RECTAL HAEMORRHAGE [None]
  - SEQUESTRECTOMY [None]
  - TONGUE BITING [None]
  - TONGUE INJURY [None]
  - TOOTH DISORDER [None]
  - TOOTH EXTRACTION [None]
  - TOOTH INFECTION [None]
  - TOOTHACHE [None]
  - TREMOR [None]
  - UPPER RESPIRATORY TRACT INFECTION [None]
  - WHEEZING [None]
